FAERS Safety Report 5632928-9 (Version None)
Quarter: 2008Q1

REPORT INFORMATION
  Report Type: 
  Country: None (occurrence: None)
  Receive Date: 20080221
  Receipt Date: 20080213
  Transmission Date: 20080703
  Serious: Yes (Hospitalization)
  Sender: FDA-Public Use
  Company Number: PHHY2008JP01430

PATIENT
  Sex: Female

DRUGS (3)
  1. AREDIA [Suspect]
     Indication: METASTASES TO BONE
     Dates: start: 20020101
  2. ANASTROZOLE [Concomitant]
     Indication: METASTASES TO BONE
     Dates: start: 20020101
  3. CAPECITABINE [Concomitant]
     Indication: METASTASES TO BONE
     Dates: start: 20020101

REACTIONS (13)
  - COMPUTERISED TOMOGRAM ABNORMAL [None]
  - GINGIVAL ABSCESS [None]
  - GINGIVAL OPERATION [None]
  - GINGIVAL SWELLING [None]
  - GINGIVITIS [None]
  - GRANULOMA [None]
  - IMPAIRED HEALING [None]
  - OSTEOMYELITIS [None]
  - PAIN [None]
  - SCINTIGRAPHY [None]
  - SEQUESTRECTOMY [None]
  - TENDERNESS [None]
  - TOOTH EXTRACTION [None]
